FAERS Safety Report 17870513 (Version 1)
Quarter: 2020Q2

REPORT INFORMATION
  Report Type: Spontaneous
  Country: US (occurrence: US)
  Receive Date: 20200608
  Receipt Date: 20200608
  Transmission Date: 20200714
  Serious: No
  Sender: FDA-Public Use
  Company Number: US-PFIZER INC-2016451553

PATIENT
  Age: 71 Year
  Sex: Female
  Weight: 89.81 kg

DRUGS (3)
  1. CLONIDINE. [Concomitant]
     Active Substance: CLONIDINE
     Indication: HYPERTENSION
     Dosage: 23 MG, 3X/DAY
     Route: 048
     Dates: start: 2010
  2. CHANTIX [Suspect]
     Active Substance: VARENICLINE TARTRATE
     Dosage: UNK (HIGHEST SHE DOSE STARTED WITH)
  3. CHANTIX [Suspect]
     Active Substance: VARENICLINE TARTRATE
     Indication: SMOKING CESSATION THERAPY
     Dosage: UNK, 2X/DAY
     Route: 048

REACTIONS (2)
  - Abdominal pain [Unknown]
  - Abnormal dreams [Unknown]
